FAERS Safety Report 13996569 (Version 1)
Quarter: 2017Q3

REPORT INFORMATION
  Report Type: Spontaneous
  Country: FR (occurrence: FR)
  Receive Date: 20170921
  Receipt Date: 20170921
  Transmission Date: 20171128
  Serious: Yes (Death, Hospitalization, Other)
  Sender: FDA-Public Use
  Company Number: FR-TOLMAR, INC.-2017FR012579

PATIENT
  Age: 93 Year
  Sex: Male

DRUGS (11)
  1. EZETROL [Concomitant]
     Active Substance: EZETIMIBE
  2. KARDEGIC [Concomitant]
     Active Substance: ASPIRIN LYSINE
  3. BISOPROLOL [Concomitant]
     Active Substance: BISOPROLOL
  4. CONTRAMAL [Concomitant]
     Active Substance: TRAMADOL HYDROCHLORIDE
  5. ZOLPIDEM TARTATE [Concomitant]
     Active Substance: ZOLPIDEM TARTRATE
  6. EUPANTOL [Concomitant]
     Active Substance: PANTOPRAZOLE SODIUM
  7. ELIGARD [Suspect]
     Active Substance: LEUPROLIDE ACETATE
     Indication: PROSTATE CANCER METASTATIC
     Dosage: 45 MG, EVERY 6 MONTHS
     Route: 058
     Dates: start: 2012, end: 20170829
  8. LASILIX                            /00032601/ [Concomitant]
     Active Substance: FUROSEMIDE
  9. DOLIPRANE [Concomitant]
     Active Substance: ACETAMINOPHEN
  10. XTANDI [Concomitant]
     Active Substance: ENZALUTAMIDE
  11. RAMIPRIL. [Concomitant]
     Active Substance: RAMIPRIL

REACTIONS (5)
  - Lung infection [Unknown]
  - Acute pulmonary oedema [Fatal]
  - Troponin increased [Unknown]
  - Fall [Unknown]
  - Chest pain [Recovered/Resolved]

NARRATIVE: CASE EVENT DATE: 201708
